FAERS Safety Report 4624393-5 (Version None)
Quarter: 2005Q1

REPORT INFORMATION
  Report Type: 
  Country: None (occurrence: None)
  Receive Date: 20050330
  Receipt Date: 20050330
  Transmission Date: 20050727
  Serious: Yes (Other)
  Sender: FDA-Public Use
  Company Number: None

PATIENT
  Age: 46 Year
  Sex: Female
  Weight: 75.2 kg

DRUGS (1)
  1. HYDROMORPHONE HCL [Suspect]
     Indication: PAIN
     Dosage: 1-4MG Q4HPM INTRAVENOUS
     Route: 042
     Dates: start: 20041231, end: 20050101

REACTIONS (6)
  - COMA [None]
  - CYANOSIS [None]
  - DYSPNOEA [None]
  - HYPOVENTILATION [None]
  - OXYGEN SATURATION DECREASED [None]
  - SOMNOLENCE [None]
